FAERS Safety Report 9159703 (Version 1)
Quarter: 2013Q1

REPORT INFORMATION
  Report Type: Spontaneous
  Country: US (occurrence: None)
  Receive Date: 20130219
  Receipt Date: 20130219
  Transmission Date: 20140127
  Serious: No
  Sender: FDA-Public Use
  Company Number: 2013SUN00115

PATIENT
  Age: 82 Year
  Sex: Female

DRUGS (2)
  1. GEMCITABINE [Suspect]
     Indication: PANCREATIC CARCINOMA METASTATIC
  2. GEMCITABINE [Suspect]

REACTIONS (5)
  - Skin necrosis [None]
  - Oedema [None]
  - Paraesthesia [None]
  - Pain [None]
  - Anaemia [None]
